FAERS Safety Report 6196241-6 (Version None)
Quarter: 2009Q2

REPORT INFORMATION
  Report Type: 
  Country: None (occurrence: None)
  Receive Date: 20090520
  Receipt Date: 20090511
  Transmission Date: 20091009
  Serious: Yes (Hospitalization)
  Sender: FDA-Public Use
  Company Number: PHHY2009CA18467

PATIENT
  Sex: Male
  Weight: 59 kg

DRUGS (1)
  1. EXJADE [Suspect]
     Indication: HEREDITARY SIDEROBLASTIC ANAEMIA
     Dosage: 1750 MG, UNK
     Route: 048
     Dates: start: 20090403

REACTIONS (2)
  - BLOOD GLUCOSE INCREASED [None]
  - HEART RATE INCREASED [None]
